FAERS Safety Report 18559068 (Version 1)
Quarter: 2020Q4

REPORT INFORMATION
  Report Type: Spontaneous
  Country: US (occurrence: US)
  Receive Date: 20201126
  Receipt Date: 20201126
  Transmission Date: 20210114
  Serious: Yes (Other)
  Sender: FDA-Public Use
  Company Number: None

PATIENT
  Age: 54 Year
  Sex: Female
  Weight: 96.75 kg

DRUGS (9)
  1. CEFAZOLIN SODIUM. [Suspect]
     Active Substance: CEFAZOLIN SODIUM
     Indication: GRANULOMA
     Route: 042
     Dates: start: 20200921, end: 20201014
  2. OXYCODONE 5MG TABLET [Concomitant]
     Dates: start: 20200921, end: 20201001
  3. SODIUM CHLORIDE 0.9% 10 ML FLUSH [Concomitant]
     Dates: start: 20200921, end: 20201116
  4. OMEPRAZOLE 20MG DR CAPSULE [Concomitant]
     Dates: start: 20201002
  5. CYCLOBENZAPRINE 10MG TABLET [Concomitant]
     Active Substance: CYCLOBENZAPRINE
     Dates: start: 20200920
  6. CEFAZOLIN SODIUM. [Suspect]
     Active Substance: CEFAZOLIN SODIUM
     Indication: SPINAL CORD ABSCESS
     Route: 042
     Dates: start: 20200921, end: 20201014
  7. HYDROCODONE/ACETAMINOPHEN 5/325MG TABLET [Concomitant]
     Dates: start: 20201002
  8. GABAPENTIN 300MG CAPSULE [Concomitant]
     Active Substance: GABAPENTIN
     Dates: start: 20200921
  9. HEPARIN 100 UNITS/ML 3ML FLUSH [Concomitant]
     Dates: start: 20200921, end: 20201116

REACTIONS (2)
  - Neutropenia [None]
  - White blood cell count decreased [None]

NARRATIVE: CASE EVENT DATE: 20201021
